FAERS Safety Report 7735175-X (Version None)
Quarter: 2011Q3

REPORT INFORMATION
  Report Type: 
  Country: None (occurrence: None)
  Receive Date: 20110907
  Receipt Date: 20110829
  Transmission Date: 20111222
  Serious: Yes (Other)
  Sender: FDA-Public Use
  Company Number: US-PFIZER INC-2011201323

PATIENT
  Sex: Female

DRUGS (5)
  1. ACCUPRIL [Concomitant]
  2. LIPITOR [Concomitant]
  3. ZOLOFT [Concomitant]
  4. PREMARIN [Concomitant]
  5. LYRICA [Suspect]
     Dosage: UNK
     Dates: start: 20050101, end: 20070101

REACTIONS (9)
  - CONSTIPATION [None]
  - HAEMORRHAGE [None]
  - WEIGHT LOSS POOR [None]
  - WEIGHT INCREASED [None]
  - URINARY INCONTINENCE [None]
  - FAECAL INCONTINENCE [None]
  - INFECTION [None]
  - HAEMORRHOIDS [None]
  - GASTRIC DISORDER [None]
